FAERS Safety Report 7875350-7 (Version None)
Quarter: 2011Q4

REPORT INFORMATION
  Report Type: 
  Country: None (occurrence: None)
  Receive Date: 20111031
  Receipt Date: 20111021
  Transmission Date: 20120403
  Serious: Yes (Other)
  Sender: FDA-Public Use
  Company Number: BR-GLAXOSMITHKLINE-A0950877A

PATIENT
  Age: 63 Year
  Sex: Male

DRUGS (10)
  1. RASILEZ [Concomitant]
     Dosage: 300MGD PER DAY
  2. LEVOTHYROXINE SODIUM [Concomitant]
     Dosage: 75MGD PER DAY
     Route: 065
  3. ATORVASTATIN [Concomitant]
     Dosage: 10MGD PER DAY
     Route: 065
  4. FUROSEMIDE [Concomitant]
     Dosage: 40MGD PER DAY
     Route: 065
  5. DIGOXIN [Suspect]
     Indication: PRODUCT USED FOR UNKNOWN INDICATION
     Dosage: .25MGD PER DAY
     Route: 048
     Dates: start: 20100101
  6. PREDNISONE [Concomitant]
     Dosage: 20MGD PER DAY
     Route: 065
  7. LOSARTAN POTASSIUM [Concomitant]
     Dosage: 50MGD PER DAY
     Route: 065
  8. CHLOROQUINE DIPHOSPHATE [Concomitant]
     Dosage: 400MGD PER DAY
     Route: 065
  9. REGULAR INSULIN [Concomitant]
     Route: 065
  10. CARVEDILOL [Concomitant]
     Dosage: 6.25MG TWICE PER DAY
     Route: 065

REACTIONS (9)
  - OEDEMA PERIPHERAL [None]
  - PULMONARY HYPERTENSION [None]
  - RENAL FAILURE CHRONIC [None]
  - LEFT VENTRICULAR HYPERTROPHY [None]
  - URINARY TRACT INFECTION [None]
  - CARDIAC FAILURE CONGESTIVE [None]
  - HYPOKINESIA [None]
  - DYSPNOEA EXERTIONAL [None]
  - HYPOTENSION [None]
